FAERS Safety Report 6981672-4 (Version None)
Quarter: 2010Q3

REPORT INFORMATION
  Report Type: 
  Country: None (occurrence: None)
  Receive Date: 20100914
  Receipt Date: 20090814
  Transmission Date: 20110219
  Serious: No
  Sender: FDA-Public Use
  Company Number: US-PFIZER INC-2009256351

PATIENT
  Sex: Male
  Weight: 68.038 kg

DRUGS (7)
  1. LYRICA [Suspect]
     Indication: NEUROPATHY PERIPHERAL
     Dosage: 50 MG, 1X/DAY
     Route: 048
     Dates: start: 20090813, end: 20090814
  2. WARFARIN [Concomitant]
     Dosage: UNK
  3. MICARDIS [Concomitant]
     Dosage: UNK
  4. CADUET [Concomitant]
     Indication: HYPERTENSION
     Dosage: UNK
  5. CADUET [Concomitant]
     Indication: BLOOD CHOLESTEROL INCREASED
  6. ARICEPT [Concomitant]
     Indication: MEMORY IMPAIRMENT
     Dosage: UNK
  7. TAMSULOSIN [Concomitant]
     Indication: NOCTURIA
     Dosage: UNK

REACTIONS (4)
  - DIPLOPIA [None]
  - DIZZINESS [None]
  - FATIGUE [None]
  - SOMNOLENCE [None]
